FAERS Safety Report 11823384 (Version 1)
Quarter: 2015Q4

REPORT INFORMATION
  Report Type: Spontaneous
  Country: US (occurrence: US)
  Receive Date: 20151210
  Receipt Date: 20151210
  Transmission Date: 20160305
  Serious: Yes (Other)
  Sender: FDA-Public Use
  Company Number: US-ASTELLAS-2015US036581

PATIENT
  Sex: Female

DRUGS (1)
  1. TARCEVA [Suspect]
     Active Substance: ERLOTINIB HYDROCHLORIDE
     Indication: LUNG NEOPLASM MALIGNANT
     Route: 048
     Dates: start: 20100114

REACTIONS (5)
  - Oral fungal infection [Unknown]
  - Oropharyngitis fungal [Unknown]
  - Cerebrovascular accident [Unknown]
  - Drug dose omission [Unknown]
  - Seizure [Unknown]
